FAERS Safety Report 21690831 (Version 1)
Quarter: 2022Q4

REPORT INFORMATION
  Report Type: Report from Study
  Country: CA (occurrence: CA)
  Receive Date: 20221207
  Receipt Date: 20221207
  Transmission Date: 20230113
  Serious: Yes (Other)
  Sender: FDA-Public Use
  Company Number: CA-HLS-202000366

PATIENT
  Age: 58 Year
  Sex: Female

DRUGS (1)
  1. CLOZARIL [Suspect]
     Active Substance: CLOZAPINE
     Route: 048
     Dates: start: 20120605

REACTIONS (3)
  - Neutropenia [Unknown]
  - Oropharyngeal cancer [Unknown]
  - Leukopenia [Unknown]

NARRATIVE: CASE EVENT DATE: 20190507
